FAERS Safety Report 4599847-0 (Version None)
Quarter: 2005Q1

REPORT INFORMATION
  Report Type: 
  Country: None (occurrence: None)
  Receive Date: 20050303
  Receipt Date: 20050217
  Transmission Date: 20050727
  Serious: Yes (Hospitalization)
  Sender: FDA-Public Use
  Company Number: 186003

PATIENT
  Age: 64 Year
  Sex: Female

DRUGS (21)
  1. AVONEX [Suspect]
     Indication: MULTIPLE SCLEROSIS
     Dosage: 30 UG; BIW; IM
     Route: 030
     Dates: start: 19980501, end: 20031101
  2. AVONEX [Suspect]
     Indication: MULTIPLE SCLEROSIS
  3. ZOLOFT [Concomitant]
  4. SYNTHROID [Concomitant]
  5. PREVACID [Concomitant]
  6. NEURONTIN [Concomitant]
  7. TEGRETOL [Concomitant]
  8. AMITRIPTYLINE HCL [Concomitant]
  9. AMANTADINE [Concomitant]
  10. DITROPAN [Concomitant]
  11. NITROSTAT [Concomitant]
  12. OXYCONTIN [Concomitant]
  13. IMITREX [Concomitant]
  14. FIORICET [Concomitant]
  15. HYDROCORTISONE [Concomitant]
  16. GABAPENTIN [Concomitant]
  17. CARBAMAZEPINE [Concomitant]
  18. COLACE [Concomitant]
  19. DULCOLAX [Concomitant]
  20. MILK OF MAGNESIA [Concomitant]
  21. SERTRALINE HCL [Concomitant]

REACTIONS (6)
  - BACTERIA BLOOD IDENTIFIED [None]
  - FUNGAL RASH [None]
  - HAEMATOCRIT DECREASED [None]
  - INJECTION SITE CELLULITIS [None]
  - INJECTION SITE INFECTION [None]
  - PYOMYOSITIS [None]
